FAERS Safety Report 18146356 (Version 1)
Quarter: 2020Q3

REPORT INFORMATION
  Report Type: Report from Study
  Country: CO (occurrence: CO)
  Receive Date: 20200813
  Receipt Date: 20200813
  Transmission Date: 20201103
  Serious: Yes (Hospitalization)
  Sender: FDA-Public Use
  Company Number: CO-UCBSA-2020030831

PATIENT
  Age: 67 Year
  Sex: Female

DRUGS (2)
  1. CLOROQUINA [CHLOROQUINE] [Concomitant]
     Active Substance: CHLOROQUINE
     Indication: RHEUMATOID ARTHRITIS
     Dosage: 250 MILLIGRAM, ONCE DAILY (QD)
     Route: 048
  2. CERTOLIZUMAB PEGOL [Suspect]
     Active Substance: CERTOLIZUMAB PEGOL
     Indication: RHEUMATOID ARTHRITIS
     Dosage: 400 MILLIGRAM, EV 4 WEEKS
     Route: 058
     Dates: start: 20191116, end: 20200213

REACTIONS (1)
  - Soft tissue infection [Recovered/Resolved]

NARRATIVE: CASE EVENT DATE: 20200306
